FAERS Safety Report 9109524 (Version 1)
Quarter: 2013Q1

REPORT INFORMATION
  Report Type: Spontaneous
  Country: FR (occurrence: FR)
  Receive Date: 20130222
  Receipt Date: 20130222
  Transmission Date: 20140127
  Serious: Yes (Hospitalization)
  Sender: FDA-Public Use
  Company Number: PHHY2013FR016449

PATIENT
  Age: 64 Year
  Sex: Male

DRUGS (4)
  1. AMOXICILLIN+CLAVULANATE [Suspect]
     Dosage: 2 DF, TID
     Route: 048
     Dates: start: 20111220, end: 20111227
  2. ADIAZINE [Suspect]
     Indication: CEREBRAL TOXOPLASMOSIS
     Dosage: 500 MG, DAILY DOSE
     Route: 047
     Dates: start: 20111216, end: 20111226
  3. INEXIUM [Suspect]
     Dosage: 40 MG, DAILY DOSE
     Route: 048
     Dates: start: 20111216, end: 20111227
  4. VALACICLOVIR [Concomitant]
     Dosage: 500 MG, BID
     Dates: start: 20111222, end: 20111227

REACTIONS (8)
  - Drug reaction with eosinophilia and systemic symptoms [Recovering/Resolving]
  - Rash maculo-papular [Recovering/Resolving]
  - Face oedema [Recovering/Resolving]
  - Hepatocellular injury [Recovering/Resolving]
  - Pyrexia [Recovering/Resolving]
  - Liver disorder [Recovering/Resolving]
  - Neutropenia [Recovering/Resolving]
  - Thrombocytopenia [Recovering/Resolving]
